FAERS Safety Report 8218951-9 (Version None)
Quarter: 2012Q1

REPORT INFORMATION
  Report Type: 
  Country: None (occurrence: None)
  Receive Date: 20120319
  Receipt Date: 20120311
  Transmission Date: 20120608
  Serious: Yes (Hospitalization)
  Sender: FDA-Public Use
  Company Number: US-US-EMD SERONO, INC.-7005633

PATIENT
  Sex: Female
  Weight: 73 kg

DRUGS (5)
  1. REBIF [Suspect]
     Indication: MULTIPLE SCLEROSIS
     Route: 058
     Dates: start: 20090315
  2. UNSPECIFIED MEDICATION [Concomitant]
     Indication: SLEEP DISORDER
  3. BYSTOLIC [Concomitant]
     Indication: CENTRAL NERVOUS SYSTEM LESION
  4. LEXAPRO [Concomitant]
     Indication: DEPRESSION
  5. KLONOPIN [Concomitant]
     Indication: ANXIETY

REACTIONS (10)
  - PALPITATIONS [None]
  - APHASIA [None]
  - INJECTION SITE HAEMORRHAGE [None]
  - DISORIENTATION [None]
  - INSOMNIA [None]
  - UNRESPONSIVE TO STIMULI [None]
  - HEART RATE INCREASED [None]
  - GRAND MAL CONVULSION [None]
  - COGNITIVE DISORDER [None]
  - INJECTION SITE ERYTHEMA [None]
